FAERS Safety Report 7461968-2 (Version None)
Quarter: 2011Q2

REPORT INFORMATION
  Report Type: 
  Country: None (occurrence: None)
  Receive Date: 20110506
  Receipt Date: 20110502
  Transmission Date: 20111010
  Serious: Yes (Life-Threatening, Hospitalization, Other)
  Sender: FDA-Public Use
  Company Number: US-ASTRAZENECA-2011SE25775

PATIENT
  Age: 48 Year
  Sex: Male

DRUGS (2)
  1. SEROQUEL XR [Suspect]
     Indication: PANIC ATTACK
     Route: 048
     Dates: start: 20100101
  2. ANTABUSE [Suspect]
     Indication: ALCOHOL WITHDRAWAL SYNDROME

REACTIONS (8)
  - RENAL FAILURE [None]
  - RENAL CANCER STAGE IV [None]
  - FURUNCLE [None]
  - IRRITABILITY [None]
  - SINUSITIS [None]
  - OFF LABEL USE [None]
  - ALCOHOL WITHDRAWAL SYNDROME [None]
  - ADVERSE REACTION [None]
